FAERS Safety Report 21422730 (Version 3)
Quarter: 2023Q2

REPORT INFORMATION
  Report Type: Spontaneous
  Country: US (occurrence: US)
  Receive Date: 20221007
  Receipt Date: 20230608
  Transmission Date: 20230721
  Serious: Yes (Other)
  Sender: FDA-Public Use
  Company Number: US-PFIZER INC-PV202200077610

PATIENT
  Age: 5 Decade
  Sex: Female

DRUGS (1)
  1. PREMARIN [Suspect]
     Active Substance: ESTROGENS, CONJUGATED
     Dosage: UNK

REACTIONS (5)
  - Fall [Unknown]
  - Meniscus removal [Unknown]
  - Feeling abnormal [Unknown]
  - Arthropathy [Unknown]
  - Bone disorder [Unknown]
